FAERS Safety Report 21787866 (Version 2)
Quarter: 2023Q1

REPORT INFORMATION
  Report Type: Spontaneous
  Country: US (occurrence: None)
  Receive Date: 20221228
  Receipt Date: 20230228
  Transmission Date: 20230418
  Serious: No
  Sender: FDA-Public Use
  Company Number: 2022A413374

PATIENT
  Sex: Female
  Weight: 93 kg

DRUGS (1)
  1. BYDUREON BCISE [Suspect]
     Active Substance: EXENATIDE
     Indication: Type 2 diabetes mellitus
     Route: 058

REACTIONS (3)
  - Injury [Unknown]
  - Incorrect dose administered by product [Unknown]
  - Device delivery system issue [Unknown]
